FAERS Safety Report 5777082-8 (Version None)
Quarter: 2008Q2

REPORT INFORMATION
  Report Type: 
  Country: None (occurrence: None)
  Receive Date: 20080617
  Receipt Date: 20080617
  Transmission Date: 20081010
  Serious: No
  Sender: FDA-Public Use
  Company Number: None

PATIENT
  Age: 82 Year
  Sex: Male

DRUGS (11)
  1. FENTANYL-50 [Suspect]
     Indication: PAIN
     Dosage: 50MCG IV
     Route: 042
     Dates: start: 20080424
  2. MORPHINE [Suspect]
     Dosage: 1 MG IV
     Route: 042
  3. PERCOCET [Suspect]
     Dosage: 2 TAB PO
     Route: 048
  4. PREVACID [Concomitant]
  5. ASPIRIN [Concomitant]
  6. DULCOLAX [Concomitant]
  7. LACTULOSE [Concomitant]
  8. LOPRESSOR [Concomitant]
  9. LASIX [Concomitant]
  10. HEPARIN [Concomitant]
  11. COMBIVENT [Concomitant]

REACTIONS (3)
  - CONFUSIONAL STATE [None]
  - CREATININE RENAL CLEARANCE DECREASED [None]
  - DEPRESSED LEVEL OF CONSCIOUSNESS [None]
